FAERS Safety Report 25778005 (Version 2)
Quarter: 2025Q3

REPORT INFORMATION
  Report Type: Spontaneous
  Country: CN (occurrence: CN)
  Receive Date: 20250909
  Receipt Date: 20250918
  Transmission Date: 20251020
  Serious: Yes (Hospitalization, Other)
  Sender: NOVARTIS
  Company Number: CN-002147023-NVSC2025CN136111

PATIENT

DRUGS (1)
  1. FABHALTA [Suspect]
     Active Substance: IPTACOPAN HYDROCHLORIDE
     Indication: Paroxysmal nocturnal haemoglobinuria
     Route: 065

REACTIONS (4)
  - Haematuria [Unknown]
  - Haemoglobin decreased [Unknown]
  - Breakthrough haemolysis [Unknown]
  - Product dose omission issue [Unknown]
